FAERS Safety Report 7473259-4 (Version None)
Quarter: 2011Q2

REPORT INFORMATION
  Report Type: 
  Country: None (occurrence: None)
  Receive Date: 20110503
  Receipt Date: 20110420
  Transmission Date: 20111010
  Serious: Yes (Hospitalization, Other)
  Sender: FDA-Public Use
  Company Number: 2010AC000383

PATIENT
  Age: 92 Year
  Sex: Female

DRUGS (23)
  1. COUMADIN [Concomitant]
  2. BENAZEPRIL HYDROCHLORIDE [Concomitant]
  3. ATROPINE [Concomitant]
  4. XOPENEX [Concomitant]
  5. ROMAZICON [Concomitant]
  6. SYNTHROID [Concomitant]
  7. COLACE [Concomitant]
  8. ATIVAN [Concomitant]
  9. NITROFURANTOIN [Concomitant]
  10. ACETAMINOPHEN [Concomitant]
  11. VESICARE [Concomitant]
  12. DIGOXIN [Suspect]
     Indication: ARRHYTHMIA
     Dosage: 0.250 MG;QD;PO
     Route: 048
     Dates: start: 20051007, end: 20070720
  13. ARICEPT [Concomitant]
  14. ROCEPHIN [Concomitant]
  15. GUAIFENESIN [Concomitant]
  16. DIFLUCAN [Concomitant]
  17. ALBUTEROL [Concomitant]
  18. PROBIOTICS [Concomitant]
  19. LEVAQUIN [Concomitant]
  20. AMLODIPINE [Concomitant]
  21. ATORVASTATIN [Concomitant]
  22. VASOTEC [Concomitant]
  23. LEVOTHYROXINE SODIUM [Concomitant]

REACTIONS (55)
  - CARDIAC DISORDER [None]
  - ECONOMIC PROBLEM [None]
  - VENTRICULAR EXTRASYSTOLES [None]
  - TREMOR [None]
  - CHRONIC OBSTRUCTIVE PULMONARY DISEASE [None]
  - DEHYDRATION [None]
  - TOXICITY TO VARIOUS AGENTS [None]
  - MENTAL STATUS CHANGES [None]
  - BRAIN NATRIURETIC PEPTIDE INCREASED [None]
  - TRICUSPID VALVE INCOMPETENCE [None]
  - DIARRHOEA [None]
  - CARDIAC FAILURE CONGESTIVE [None]
  - ASTHMA [None]
  - MULTIPLE INJURIES [None]
  - COORDINATION ABNORMAL [None]
  - DILATATION ATRIAL [None]
  - BRONCHIAL SECRETION RETENTION [None]
  - PYREXIA [None]
  - OEDEMA PERIPHERAL [None]
  - BLOOD CREATININE INCREASED [None]
  - AORTIC ARTERIOSCLEROSIS [None]
  - HYPONATRAEMIA [None]
  - NODAL RHYTHM [None]
  - LACUNAR INFARCTION [None]
  - CEREBRAL ISCHAEMIA [None]
  - PULMONARY HYPERTENSION [None]
  - PULMONARY OEDEMA [None]
  - LEUKOCYTOSIS [None]
  - ATRIAL FIBRILLATION [None]
  - CONSTIPATION [None]
  - ANXIETY [None]
  - BLOOD UREA INCREASED [None]
  - URINE ODOUR ABNORMAL [None]
  - FUNGAL TEST POSITIVE [None]
  - LOBAR PNEUMONIA [None]
  - SCAR [None]
  - DECREASED APPETITE [None]
  - VOMITING [None]
  - URINARY TRACT INFECTION [None]
  - PAIN [None]
  - LUNG INFILTRATION [None]
  - CHEST X-RAY ABNORMAL [None]
  - ESCHERICHIA SEPSIS [None]
  - DEMENTIA [None]
  - COUGH [None]
  - INTERSTITIAL LUNG DISEASE [None]
  - BRADYCARDIA [None]
  - CYSTITIS [None]
  - URINARY INCONTINENCE [None]
  - ASTHENIA [None]
  - CARDIOMEGALY [None]
  - MITRAL VALVE INCOMPETENCE [None]
  - AORTIC VALVE INCOMPETENCE [None]
  - NAUSEA [None]
  - RESPIRATORY DISORDER [None]
